FAERS Safety Report 9640656 (Version 1)
Quarter: 2013Q4

REPORT INFORMATION
  Report Type: Report from Study
  Country: US (occurrence: US)
  Receive Date: 20131023
  Receipt Date: 20131023
  Transmission Date: 20140711
  Serious: No
  Sender: FDA-Public Use
  Company Number: US-ABBVIE-13P-163-1130057-00

PATIENT
  Sex: Female
  Weight: 83.08 kg

DRUGS (1)
  1. LUPRON DEPOT [Suspect]
     Indication: UTERINE LEIOMYOMA
     Route: 050
     Dates: start: 201305

REACTIONS (2)
  - Hot flush [Not Recovered/Not Resolved]
  - Hyperhidrosis [Recovering/Resolving]
